FAERS Safety Report 8575910-4 (Version None)
Quarter: 2012Q2

REPORT INFORMATION
  Report Type: 
  Country: None (occurrence: None)
  Receive Date: 20120423
  Receipt Date: 20100830
  Transmission Date: 20120825
  Serious: Yes (Other)
  Sender: FDA-Public Use
  Company Number: PHHY2010US57602

PATIENT
  Age: 56 Year
  Sex: Male

DRUGS (1)
  1. EXJADE [Suspect]
     Dosage: 1000 MG, QD, ORAL
     Route: 048
     Dates: end: 20100701

REACTIONS (4)
  - SERUM FERRITIN INCREASED [None]
  - BODY TEMPERATURE INCREASED [None]
  - GINGIVITIS [None]
  - DECREASED APPETITE [None]
